FAERS Safety Report 8449836-0 (Version None)
Quarter: 2012Q2

REPORT INFORMATION
  Report Type: 
  Country: None (occurrence: None)
  Receive Date: 20120620
  Receipt Date: 20120611
  Transmission Date: 20120825
  Serious: Yes (Hospitalization)
  Sender: FDA-Public Use
  Company Number: US-ELI_LILLY_AND_COMPANY-US201206003698

PATIENT
  Sex: Female

DRUGS (1)
  1. ZYPREXA [Suspect]
     Dosage: 7.5 MG, UNKNOWN
     Dates: start: 19930101

REACTIONS (5)
  - DIZZINESS [None]
  - CONFUSIONAL STATE [None]
  - VOMITING [None]
  - NAUSEA [None]
  - BLOOD SODIUM DECREASED [None]
